FAERS Safety Report 7222487-1 (Version None)
Quarter: 2010Q4

REPORT INFORMATION
  Report Type: 
  Country: None (occurrence: None)
  Receive Date: 20101126
  Receipt Date: 20100804
  Transmission Date: 20110411
  Serious: No
  Sender: FDA-Public Use
  Company Number: 312606

PATIENT
  Age: 59 Year
  Sex: Female

DRUGS (2)
  1. VICTOZA [Suspect]
     Indication: TYPE 2 DIABETES MELLITUS
     Dosage: 1.8 MG, QD, SUBCUTANEOUS
     Route: 058
     Dates: start: 20100601
  2. LANTUS [Concomitant]

REACTIONS (5)
  - EPISTAXIS [None]
  - HEADACHE [None]
  - MOOD SWINGS [None]
  - NERVOUSNESS [None]
  - WEIGHT DECREASED [None]
